FAERS Safety Report 9192806 (Version 3)
Quarter: 2013Q3

REPORT INFORMATION
  Report Type: Spontaneous
  Country: FR (occurrence: FR)
  Receive Date: 20130327
  Receipt Date: 20130904
  Transmission Date: 20140515
  Serious: Yes (Hospitalization, Other)
  Sender: FDA-Public Use
  Company Number: FR-PFIZER INC-2013092590

PATIENT
  Age: 31 Year
  Sex: Female

DRUGS (4)
  1. ADVIL [Suspect]
     Indication: APHTHOUS STOMATITIS
     Dosage: 1 DF, SINGLE
     Dates: start: 20100227, end: 201003
  2. DOLIPRANE [Concomitant]
     Dosage: UNK
     Dates: start: 20100227, end: 201003
  3. ASPIRINE [Concomitant]
  4. SOLUPRED [Concomitant]
     Dosage: UNK
     Dates: start: 20100301

REACTIONS (10)
  - Agranulocytosis [Recovered/Resolved with Sequelae]
  - Febrile neutropenia [Recovered/Resolved with Sequelae]
  - Tonsillitis [Recovered/Resolved]
  - Mucosal inflammation [Recovered/Resolved]
  - Fatigue [Recovered/Resolved]
  - Pyrexia [Recovered/Resolved]
  - Asthenia [Recovered/Resolved]
  - Weight decreased [Recovered/Resolved]
  - Headache [Recovered/Resolved]
  - Product quality issue [Unknown]
